FAERS Safety Report 18980294 (Version 12)
Quarter: 2023Q4

REPORT INFORMATION
  Report Type: Spontaneous
  Country: US (occurrence: US)
  Receive Date: 20210308
  Receipt Date: 20231117
  Transmission Date: 20240110
  Serious: Yes (Hospitalization, Other)
  Sender: FDA-Public Use
  Company Number: US-PFIZER INC-2019398419

PATIENT
  Age: 85 Year
  Sex: Female
  Weight: 47.619 kg

DRUGS (1)
  1. BOSULIF [Suspect]
     Active Substance: BOSUTINIB MONOHYDRATE
     Indication: Chronic myeloid leukaemia
     Dosage: 100 MG, 1X/DAY
     Route: 048
     Dates: start: 2021

REACTIONS (9)
  - Hypotension [Unknown]
  - Blindness [Not Recovered/Not Resolved]
  - Femur fracture [Unknown]
  - Loss of consciousness [Unknown]
  - Dysphonia [Not Recovered/Not Resolved]
  - Dizziness [Unknown]
  - Fall [Unknown]
  - Anaemia [Unknown]
  - Confusional state [Unknown]
